FAERS Safety Report 9028798 (Version 1)
Quarter: 2013Q1

REPORT INFORMATION
  Report Type: Spontaneous
  Country: US (occurrence: US)
  Receive Date: 20130124
  Receipt Date: 20130124
  Transmission Date: 20140127
  Serious: No
  Sender: FDA-Public Use
  Company Number: US-BAUSCH-2012BL002044

PATIENT
  Age: 74 Year
  Sex: Female

DRUGS (3)
  1. ALAWAY [Suspect]
     Indication: EYE ALLERGY
     Route: 047
     Dates: start: 20120321, end: 20120321
  2. PREDNISOLONE [Concomitant]
  3. THERATEARS [Concomitant]

REACTIONS (1)
  - Eye irritation [Recovering/Resolving]
